FAERS Safety Report 10253179 (Version 1)
Quarter: 2014Q2

REPORT INFORMATION
  Report Type: Spontaneous
  Country: US (occurrence: US)
  Receive Date: 20140623
  Receipt Date: 20140623
  Transmission Date: 20141212
  Serious: Yes (Hospitalization)
  Sender: FDA-Public Use
  Company Number: US-BRISTOL-MYERS SQUIBB COMPANY-21020227

PATIENT
  Sex: Male

DRUGS (2)
  1. ABILIFY TABS [Suspect]
     Route: 048
  2. ABILIFY MAINTENA INJECTION [Suspect]
     Indication: SCHIZOPHRENIA
     Route: 030
     Dates: start: 2014

REACTIONS (3)
  - Hypersexuality [Unknown]
  - Delusion [Unknown]
  - Drug diversion [Unknown]
